FAERS Safety Report 10377647 (Version 2)
Quarter: 2014Q3

REPORT INFORMATION
  Report Type: Report from Study
  Country: US (occurrence: US)
  Receive Date: 20140812
  Receipt Date: 20140820
  Transmission Date: 20150326
  Serious: Yes (Hospitalization)
  Sender: FDA-Public Use
  Company Number: PHHO2014US010774

PATIENT
  Age: 23 Year
  Sex: Female

DRUGS (15)
  1. SORAFENIB [Suspect]
     Active Substance: SORAFENIB
     Indication: GLIOBLASTOMA
     Dosage: 400 MG, UNK (TWICE DAILY EVERY OTHER WEEK)
     Route: 048
     Dates: start: 201407
  2. CALCIUM CARBONATE AND VITAMIN D [Concomitant]
     Dosage: 500 MG, QD
     Route: 048
  3. TIZANIDINE [Concomitant]
     Active Substance: TIZANIDINE
     Dosage: 4 MG, TID
     Route: 048
  4. DOXYCYCLINE. [Concomitant]
     Active Substance: DOXYCYCLINE
     Dosage: DAILY X2 WEEKS
     Route: 048
  5. VANCOMYCIN [Concomitant]
     Active Substance: VANCOMYCIN
     Dosage: 1 DOSE
     Route: 042
  6. SERTRALINE [Concomitant]
     Active Substance: SERTRALINE HYDROCHLORIDE
     Dosage: 50 MG DAILY FOR 1 WEEK, THEN INCREASE TO 100 MG
     Route: 048
  7. AFINITOR [Suspect]
     Active Substance: EVEROLIMUS
     Indication: GLIOBLASTOMA
     Dosage: 5 MG, QD
     Route: 048
     Dates: start: 201407
  8. VITAMINS NOS [Concomitant]
     Active Substance: VITAMINS
     Dosage: TWICE DAILY
     Route: 048
  9. TRIAMCINOLONE ACETONIDE. [Concomitant]
     Active Substance: TRIAMCINOLONE ACETONIDE
     Dosage: 0.5 %, TID
     Route: 061
  10. OMEGA 3 FISH OILS [Concomitant]
     Dosage: 100 MG, QD
     Route: 048
  11. FEXOFENADINE [Concomitant]
     Active Substance: FEXOFENADINE\FEXOFENADINE HYDROCHLORIDE
     Dosage: 180 MG, QD
  12. LEVETIRACETAM. [Concomitant]
     Active Substance: LEVETIRACETAM
     Dosage: 750 MG, BID
     Route: 048
  13. LEVETIRACETAM. [Concomitant]
     Active Substance: LEVETIRACETAM
     Dosage: 500 MG, Q12H
     Route: 048
  14. MONTELUCAST [Concomitant]
     Dosage: 10 MG, QD
     Route: 048
  15. LORAZEPAM. [Concomitant]
     Active Substance: LORAZEPAM
     Indication: ANXIETY
     Dosage: 1 DF, TID (1 TABLET THREE TIMES A DAY)
     Route: 048

REACTIONS (1)
  - Incisional drainage [Recovering/Resolving]

NARRATIVE: CASE EVENT DATE: 20140722
